FAERS Safety Report 10226744 (Version 2)
Quarter: 2014Q3

REPORT INFORMATION
  Report Type: Spontaneous
  Country: US (occurrence: US)
  Receive Date: 20140610
  Receipt Date: 20140902
  Transmission Date: 20150326
  Serious: Yes (Other)
  Sender: FDA-Public Use
  Company Number: PHEH2014US010980

PATIENT
  Sex: Female

DRUGS (18)
  1. GLUCOPHAGE [Suspect]
     Active Substance: METFORMIN HYDROCHLORIDE
     Dosage: UNK UKN, UNK
  2. NOVOLOG [Suspect]
     Active Substance: INSULIN ASPART
     Dosage: UNK UKN, UNK
  3. LYRICA [Concomitant]
     Active Substance: PREGABALIN
     Dosage: UNK UKN, UNK
  4. SKELAXIN [Concomitant]
     Active Substance: METAXALONE
     Dosage: UNK UKN, UNK
  5. LODINE [Concomitant]
     Active Substance: ETODOLAC
     Dosage: UNK UKN, UNK
  6. NATEGLINIDE. [Concomitant]
     Active Substance: NATEGLINIDE
     Dosage: UNK UKN, UNK
  7. CITRACAL-D [Concomitant]
     Dosage: UNK UKN, UNK
  8. PARKOCET [Concomitant]
     Dosage: 5 MG, UNK
  9. VITAMIN B12 [Concomitant]
     Active Substance: CYANOCOBALAMIN
     Dosage: UNK UKN, UNK
  10. METFORMIN [Suspect]
     Active Substance: METFORMIN HYDROCHLORIDE
     Dosage: UNK UKN, UNK
  11. BACTRIM [Suspect]
     Active Substance: SULFAMETHOXAZOLE\TRIMETHOPRIM
     Dosage: UNK UKN, UNK
  12. GLUCOSAMINE [Concomitant]
     Active Substance: GLUCOSAMINE
     Dosage: UNK UKN, UNK
  13. ESTROGEN [Concomitant]
     Active Substance: ESTRONE\SUS SCROFA OVARY
     Dosage: UNK UKN, UNK
  14. LIDOCAINE. [Concomitant]
     Active Substance: LIDOCAINE
     Dosage: UNK UKN, UNK
  15. INSULIN [Concomitant]
     Active Substance: INSULIN NOS
     Dosage: UNK UKN, UNK
  16. CELEBREX [Suspect]
     Active Substance: CELECOXIB
     Dosage: UNK UKN, UNK
  17. VIOXX [Suspect]
     Active Substance: ROFECOXIB
     Dosage: UNK UKN, UNK
  18. GABAPENTIN. [Concomitant]
     Active Substance: GABAPENTIN
     Dosage: UNK UKN, UNK

REACTIONS (7)
  - Fibromyalgia [Unknown]
  - Pyrexia [Unknown]
  - Muscle disorder [Unknown]
  - Feeling hot [Unknown]
  - Sinus disorder [Unknown]
  - Drug hypersensitivity [Unknown]
  - Hip fracture [Unknown]
